FAERS Safety Report 11320938 (Version 1)
Quarter: 2015Q3

REPORT INFORMATION
  Report Type: Spontaneous
  Country: US (occurrence: None)
  Receive Date: 20150728
  Receipt Date: 20150728
  Transmission Date: 20151125
  Serious: Yes (Hospitalization)
  Sender: FDA-Public Use
  Company Number: None

PATIENT
  Age: 85 Year
  Sex: Male
  Weight: 65.5 kg

DRUGS (1)
  1. ACETAMINOPHEN/HYDROCODONE [Suspect]
     Active Substance: ACETAMINOPHEN\HYDROCODONE
     Indication: PAIN
     Dosage: 5/325 MG  BID  PO
     Route: 048
     Dates: start: 20140131

REACTIONS (5)
  - Constipation [None]
  - Abdominal discomfort [None]
  - Decreased appetite [None]
  - Scleritis [None]
  - Nausea [None]

NARRATIVE: CASE EVENT DATE: 20140909
